FAERS Safety Report 15769680 (Version 1)
Quarter: 2018Q4

REPORT INFORMATION
  Report Type: Spontaneous
  Country: NL (occurrence: NL)
  Receive Date: 20181228
  Receipt Date: 20181228
  Transmission Date: 20190205
  Serious: Yes (Other)
  Sender: FDA-Public Use
  Company Number: NL-TEVA-2018-NL-992278

PATIENT
  Age: 66 Year
  Sex: Male

DRUGS (8)
  1. AMIODARON TABLET, 200 MG (MILLIGRAM) [Suspect]
     Active Substance: AMIODARONE
     Indication: ARRHYTHMIA
     Dosage: 3X PER DAG 1 TABLET
     Dates: start: 20180719, end: 20180720
  2. PLAQUENIL [Concomitant]
     Active Substance: HYDROXYCHLOROQUINE SULFATE
     Dosage: 200 MILLIGRAM DAILY; 1X PER DAG 1 TAB A 200 MG
     Route: 065
     Dates: start: 201010
  3. HYDROCHLOORTHIAZIDE [Concomitant]
     Active Substance: HYDROCHLOROTHIAZIDE
     Dosage: 25 MILLIGRAM DAILY; 1X PER DAY 1 LOSS OF 25 MG
     Dates: start: 201003
  4. D-CURA DRANK [Concomitant]
     Dosage: 1X PER MONTH 2 AMPOULES A 25000IE
     Dates: start: 201803
  5. PERINDOPRIL [Concomitant]
     Active Substance: PERINDOPRIL
     Dosage: 4 MILLIGRAM DAILY; 1X PER DAY 1 LOSS OF 4 MG
     Dates: start: 200910
  6. OMEPRAZOL [Concomitant]
     Active Substance: OMEPRAZOLE
     Dosage: 20 MILLIGRAM DAILY; 1X A DAY 1 CAPS OF 20 MG
     Route: 065
     Dates: start: 201010
  7. PRADAXA [Concomitant]
     Active Substance: DABIGATRAN ETEXILATE MESYLATE
     Dosage: 300 MILLIGRAM DAILY;
     Dates: start: 201712
  8. METOPROLOL RETARD [Concomitant]
     Active Substance: METOPROLOL TARTRATE
     Dosage: 25 MILLIGRAM DAILY;
     Dates: start: 201712

REACTIONS (4)
  - Swollen tongue [Recovered/Resolved]
  - Pharyngeal oedema [Recovered/Resolved]
  - Angioedema [Recovered/Resolved]
  - Dysphonia [Recovered/Resolved]

NARRATIVE: CASE EVENT DATE: 20180720
